FAERS Safety Report 6267921-9 (Version None)
Quarter: 2009Q3

REPORT INFORMATION
  Report Type: 
  Country: None (occurrence: None)
  Receive Date: 20090714
  Receipt Date: 20090630
  Transmission Date: 20100115
  Serious: Yes (Death, Hospitalization, Other)
  Sender: FDA-Public Use
  Company Number: CZ-GENENTECH-284920

PATIENT
  Age: 69 Year
  Sex: Male

DRUGS (8)
  1. RITUXIMAB [Suspect]
     Indication: B-CELL LYMPHOMA
     Dosage: UNK
     Route: 065
     Dates: start: 20030101
  2. INTERFERON ALFA [Suspect]
     Indication: B-CELL LYMPHOMA
     Dosage: UNK
     Route: 065
     Dates: start: 20040501
  3. CYCLOPHOSPHAMIDE [Suspect]
     Indication: B-CELL LYMPHOMA
     Dosage: UNK
     Route: 048
     Dates: start: 20030101
  4. DOXORUBICIN HCL [Suspect]
     Indication: B-CELL LYMPHOMA
     Dosage: UNK
     Route: 065
     Dates: start: 20030101
  5. ONCOVIN [Suspect]
     Indication: B-CELL LYMPHOMA
     Dosage: UNK
     Route: 065
     Dates: start: 20030101
  6. PREDNISONE TAB [Suspect]
     Indication: B-CELL LYMPHOMA
     Dosage: UNK
     Route: 065
     Dates: start: 20030101
  7. FLUDARABINE PHOSPHATE [Suspect]
     Indication: B-CELL LYMPHOMA
     Dosage: UNK
     Route: 048
     Dates: start: 20060501
  8. CHLORAMBUCIL [Concomitant]
     Indication: DRUG USE FOR UNKNOWN INDICATION

REACTIONS (13)
  - BRONCHOPULMONARY ASPERGILLOSIS [None]
  - CANDIDA PNEUMONIA [None]
  - COMA [None]
  - DEMYELINATION [None]
  - JC VIRUS INFECTION [None]
  - MALIGNANT NEOPLASM PROGRESSION [None]
  - MENTAL DISORDER [None]
  - MOBILITY DECREASED [None]
  - MULTI-ORGAN FAILURE [None]
  - NUCLEAR MAGNETIC RESONANCE IMAGING BRAIN ABNORMAL [None]
  - PROGRESSIVE MULTIFOCAL LEUKOENCEPHALOPATHY [None]
  - QUADRIPLEGIA [None]
  - SEPTIC SHOCK [None]
